FAERS Safety Report 22018639 (Version 3)
Quarter: 2023Q2

REPORT INFORMATION
  Report Type: Report from Study
  Country: US (occurrence: US)
  Receive Date: 20230222
  Receipt Date: 20230416
  Transmission Date: 20230722
  Serious: Yes (Hospitalization, Other)
  Sender: FDA-Public Use
  Company Number: US-AMGEN-USACT2023030986

PATIENT
  Age: 55 Year
  Sex: Male
  Weight: 104.3 kg

DRUGS (4)
  1. SOTORASIB [Suspect]
     Active Substance: SOTORASIB
     Indication: Non-small cell lung cancer
     Dosage: 960 MILLIGRAM, QD
     Route: 048
     Dates: start: 20221215, end: 20230210
  2. SOTORASIB [Suspect]
     Active Substance: SOTORASIB
     Dosage: 960 MILLIGRAM, QD
     Route: 048
     Dates: start: 20230216
  3. AVUTOMETINIB [Suspect]
     Active Substance: AVUTOMETINIB
     Indication: Non-small cell lung cancer
     Dosage: 4 MILLIGRAM, 2 TIMES/WK (THURSDAY/SUNDAY)
     Route: 048
     Dates: start: 20221215, end: 20230205
  4. AVUTOMETINIB [Suspect]
     Active Substance: AVUTOMETINIB
     Dosage: 4 MILLIGRAM, 2 TIMES/WK
     Route: 048
     Dates: start: 20230216

REACTIONS (2)
  - Blood creatine phosphokinase increased [Recovered/Resolved]
  - Inguinal hernia [Recovered/Resolved]

NARRATIVE: CASE EVENT DATE: 20230206
